FAERS Safety Report 10352918 (Version 1)
Quarter: 2014Q3

REPORT INFORMATION
  Report Type: Spontaneous
  Country: US (occurrence: US)
  Receive Date: 20140730
  Receipt Date: 20140730
  Transmission Date: 20150326
  Serious: No
  Sender: FDA-Public Use
  Company Number: US-ABBVIE-13P-163-1173749-00

PATIENT
  Age: 60 Year
  Sex: Female

DRUGS (1)
  1. SYNTHROID [Suspect]
     Active Substance: LEVOTHYROXINE SODIUM
     Indication: PRODUCT USED FOR UNKNOWN INDICATION

REACTIONS (6)
  - Urine odour abnormal [Unknown]
  - Heart rate irregular [Unknown]
  - Vision blurred [Unknown]
  - Dry skin [Unknown]
  - Hair texture abnormal [Unknown]
  - Muscle spasms [Unknown]
